FAERS Safety Report 5002131-4 (Version None)
Quarter: 2006Q2

REPORT INFORMATION
  Report Type: 
  Country: None (occurrence: None)
  Receive Date: 20060515
  Receipt Date: 20060504
  Transmission Date: 20061013
  Serious: Yes (Other)
  Sender: FDA-Public Use
  Company Number: 2006AC00893

PATIENT
  Age: 11 Year
  Sex: Male
  Weight: 35 kg

DRUGS (11)
  1. ROPIVACAINE [Suspect]
     Indication: POSTOPERATIVE ANALGESIA
     Route: 008
  2. FENTANYL [Suspect]
     Indication: POSTOPERATIVE ANALGESIA
     Route: 008
  3. MIDAZOLAM HCL [Concomitant]
     Indication: ANAESTHETIC PREMEDICATION
     Route: 048
  4. PROPOFOL [Concomitant]
     Indication: ANAESTHESIA
  5. PROPOFOL [Concomitant]
     Dosage: ANESTHETIC MAINTENANCE
  6. REMIFENTANYL [Concomitant]
     Indication: ANAESTHESIA
  7. REMIFENTANYL [Concomitant]
     Dosage: ANESTHETIC MAINTENANCE
  8. MIVACURIUM [Concomitant]
     Indication: NEUROMUSCULAR BLOCKADE
  9. MIVACURIUM [Concomitant]
     Dosage: ANESTHETIC MAINTENANCE
  10. BUPIVACAINE [Concomitant]
     Dosage: TEST DOSE
     Route: 008
  11. ROPIVACAINE [Concomitant]

REACTIONS (1)
  - NEUROMUSCULAR BLOCKADE [None]
